FAERS Safety Report 8879363 (Version 3)
Quarter: 2014Q2

REPORT INFORMATION
  Report Type: Report from Study
  Country: US (occurrence: US)
  Receive Date: 20121031
  Receipt Date: 20140612
  Transmission Date: 20141212
  Serious: Yes (Hospitalization, Other)
  Sender: FDA-Public Use
  Company Number: US-BRISTOL-MYERS SQUIBB COMPANY-17074758

PATIENT
  Age: 63 Year
  Sex: Female
  Weight: 60.3 kg

DRUGS (15)
  1. NIVOLUMAB [Suspect]
     Indication: MALIGNANT MELANOMA
     Dosage: LAST DOSE:16OCT12
     Route: 042
     Dates: start: 20120905, end: 20121106
  2. IPILIMUMAB [Suspect]
     Indication: MALIGNANT MELANOMA
     Dosage: LAST DOSE:16OCT12
     Route: 042
     Dates: start: 20120905, end: 20121106
  3. EFFEXOR [Concomitant]
     Indication: DEPRESSION
     Route: 048
     Dates: start: 2000
  4. ALDACTAZIDE [Concomitant]
     Dosage: 1 DF: 50/50 UNIT NOS
     Route: 048
     Dates: start: 1982
  5. VITAMIN D [Concomitant]
     Indication: VITAMIN SUPPLEMENTATION
     Route: 048
     Dates: start: 2008
  6. VITAMIN C [Concomitant]
     Indication: VITAMIN SUPPLEMENTATION
     Dosage: 1 DF: 1 TABS
     Route: 048
     Dates: start: 2002
  7. CALCIUM [Concomitant]
     Indication: MINERAL SUPPLEMENTATION
     Dosage: 1 DF: 1 TABS
     Route: 048
     Dates: start: 2008, end: 20121018
  8. BIOTIN [Concomitant]
     Dosage: 1 DF:1 TABS
     Route: 048
     Dates: start: 2010
  9. FISH OIL [Concomitant]
     Dosage: 1 DF: 1 TAB
     Route: 048
     Dates: start: 2006
  10. ZOLPIDEM [Concomitant]
     Indication: INSOMNIA
     Dosage: DOSAGE:QHS PRN
     Route: 048
     Dates: start: 201201
  11. ALPRAZOLAM [Concomitant]
     Indication: ANXIETY
     Route: 048
     Dates: start: 201202
  12. ADVIL [Concomitant]
     Indication: PAIN
     Route: 048
     Dates: start: 20120909
  13. MORPHINE [Concomitant]
     Dosage: MORPHINE ALLERGY
  14. SYNTHROID [Concomitant]
     Indication: HYPOTHYROIDISM
     Route: 048
     Dates: start: 20121003
  15. BENADRYL [Concomitant]
     Indication: PRURITUS
     Route: 048
     Dates: start: 20120911, end: 20120926

REACTIONS (5)
  - Supraventricular tachycardia [Recovered/Resolved]
  - Hyponatraemia [Recovered/Resolved]
  - Alanine aminotransferase increased [Recovered/Resolved]
  - Aspartate aminotransferase increased [Recovered/Resolved]
  - Lipase increased [Recovered/Resolved]
